FAERS Safety Report 6306846-7 (Version None)
Quarter: 2009Q3

REPORT INFORMATION
  Report Type: 
  Country: None (occurrence: None)
  Receive Date: 20090812
  Receipt Date: 20090731
  Transmission Date: 20100115
  Serious: Yes (Death, Hospitalization)
  Sender: FDA-Public Use
  Company Number: ES-PFIZER INC-2009248451

PATIENT
  Age: 60 Year

DRUGS (3)
  1. ECALTA [Suspect]
     Indication: ASPERGILLOSIS
     Dosage: 200 MG, 1X/DAY
     Route: 042
     Dates: start: 20090601, end: 20090601
  2. ECALTA [Suspect]
     Dosage: 100 MG, 1X/DAY
     Route: 042
     Dates: start: 20090601, end: 20090601
  3. VANCOMYCIN [Concomitant]

REACTIONS (2)
  - HEPATIC FAILURE [None]
  - LUNG INFECTION [None]
